FAERS Safety Report 21064695 (Version 1)
Quarter: 2022Q3

REPORT INFORMATION
  Report Type: Spontaneous
  Country: SE (occurrence: SE)
  Receive Date: 20220711
  Receipt Date: 20220711
  Transmission Date: 20221026
  Serious: Yes (Death, Other)
  Sender: FDA-Public Use
  Company Number: None

PATIENT
  Age: 83 Year
  Sex: Female

DRUGS (5)
  1. REMDESIVIR [Suspect]
     Active Substance: REMDESIVIR
     Indication: COVID-19
     Route: 042
     Dates: start: 202201
  2. FUROSEMIDE [Concomitant]
     Active Substance: FUROSEMIDE
  3. BETAPRED [Concomitant]
     Active Substance: BETAMETHASONE SODIUM PHOSPHATE
  4. BISOPROLOL [Concomitant]
     Active Substance: BISOPROLOL
  5. FRAGMIN [Concomitant]
     Active Substance: DALTEPARIN SODIUM

REACTIONS (2)
  - Brain stem ischaemia [Fatal]
  - Cerebrovascular accident [Fatal]

NARRATIVE: CASE EVENT DATE: 20220127
